FAERS Safety Report 6645456-9 (Version None)
Quarter: 2010Q1

REPORT INFORMATION
  Report Type: 
  Country: None (occurrence: None)
  Receive Date: 20100322
  Receipt Date: 20100311
  Transmission Date: 20100710
  Serious: Yes (Other)
  Sender: FDA-Public Use
  Company Number: US-ASTRAZENECA-2010SE10627

PATIENT
  Age: 68 Year
  Sex: Female
  Weight: 54.4 kg

DRUGS (3)
  1. NEXIUM [Suspect]
     Route: 048
  2. FOSAMAX [Concomitant]
  3. COUMADIN [Concomitant]
     Indication: PULMONARY EMBOLISM

REACTIONS (3)
  - ABDOMINAL DISCOMFORT [None]
  - NAUSEA [None]
  - PULMONARY EMBOLISM [None]
